FAERS Safety Report 7801423-0 (Version None)
Quarter: 2011Q4

REPORT INFORMATION
  Report Type: 
  Country: None (occurrence: None)
  Receive Date: 20111006
  Receipt Date: 20111006
  Transmission Date: 20120403
  Serious: Yes (Hospitalization)
  Sender: FDA-Public Use
  Company Number: None

PATIENT
  Age: 89 Year
  Sex: Female
  Weight: 70.6 kg

DRUGS (14)
  1. NORVASC [Concomitant]
  2. ZANTAC [Concomitant]
  3. VIT D [Concomitant]
  4. AMIODARONE HCL [Concomitant]
  5. METOPROLOL TARTRATE [Concomitant]
     Indication: PERCUTANEOUS CORONARY INTERVENTION
  6. CALCITONIN SALMON [Concomitant]
  7. LASIX [Concomitant]
  8. PRADAXA [Suspect]
     Indication: ATRIAL FIBRILLATION
     Dosage: 150MG BID PO CHRONIC
     Route: 048
  9. ASPIRIN [Suspect]
     Indication: CORONARY ARTERY DISEASE
     Dosage: 81MG DAILY PO CHRONIC
     Route: 048
  10. NITROGLYCERIN [Concomitant]
  11. SANCTURA XR [Concomitant]
  12. ATIVAN [Concomitant]
  13. SYSTANE [Concomitant]
  14. COLACE [Concomitant]

REACTIONS (2)
  - FALL [None]
  - HAEMATOMA [None]
